FAERS Safety Report 9738451 (Version 1)
Quarter: 2013Q4

REPORT INFORMATION
  Report Type: Report from Study
  Country: US (occurrence: US)
  Receive Date: 20131208
  Receipt Date: 20131208
  Transmission Date: 20140711
  Serious: Yes (Other)
  Sender: FDA-Public Use
  Company Number: US-ROCHE-1311092

PATIENT
  Age: 58 Year
  Sex: Female

DRUGS (5)
  1. ACTEMRA [Suspect]
     Indication: RHEUMATOID ARTHRITIS
     Route: 065
  2. FOLIC ACID [Concomitant]
  3. SULFASALAZINE [Concomitant]
  4. CYMBALTA [Concomitant]
  5. METHOTREXATE [Concomitant]

REACTIONS (12)
  - Arthralgia [Unknown]
  - Tenderness [Unknown]
  - Cough [Unknown]
  - Nausea [Unknown]
  - Local swelling [Unknown]
  - Vomiting [Unknown]
  - Pain [Not Recovered/Not Resolved]
  - Basal cell carcinoma [Unknown]
  - Bronchitis [Unknown]
  - Radicular pain [Not Recovered/Not Resolved]
  - Back pain [Unknown]
  - Joint lock [Unknown]
